FAERS Safety Report 6601808-4 (Version None)
Quarter: 2010Q1

REPORT INFORMATION
  Report Type: 
  Country: None (occurrence: None)
  Receive Date: 20100218
  Receipt Date: 20100205
  Transmission Date: 20100710
  Serious: Yes (Hospitalization)
  Sender: FDA-Public Use
  Company Number: DSJ-2010-01942

PATIENT
  Age: 72 Year
  Sex: Female

DRUGS (5)
  1. OLMESARTAN MEDOXOMIL [Suspect]
     Indication: HYPERTENSION
     Dosage: 20 MG, PER ORAL, 10 MG, PER ORAL
     Route: 048
     Dates: start: 20091227, end: 20100108
  2. OLMESARTAN MEDOXOMIL [Suspect]
     Indication: HYPERTENSION
     Dosage: 20 MG, PER ORAL, 10 MG, PER ORAL
     Route: 048
     Dates: start: 20100118, end: 20100203
  3. FUROSEMIDE (FUROSEMIDE) (FUROSEMIDE) [Concomitant]
  4. LAC-B (LACTOBACILLUS BIFIDUS, LYOPHILIZED) (LACTOBACILLUS BIFIDUS, LYO [Concomitant]
  5. VITAMEDIN PYRIDOXINE HYPDROCHLORIDE, CYANOCOBALAMIN, BENFOTIAMINE) (CA [Concomitant]

REACTIONS (5)
  - DEHYDRATION [None]
  - HAEMOGLOBIN DECREASED [None]
  - OLIGURIA [None]
  - RED BLOOD CELL COUNT DECREASED [None]
  - SHOCK [None]
